FAERS Safety Report 23590031 (Version 1)
Quarter: 2024Q1

REPORT INFORMATION
  Report Type: Spontaneous
  Country: US (occurrence: US)
  Receive Date: 20240304
  Receipt Date: 20240304
  Transmission Date: 20240410
  Serious: No
  Sender: FDA-Public Use
  Company Number: US-BIOVITRUM-2024-US-003195

PATIENT
  Age: 14 Month
  Sex: Male
  Weight: 7.71 kg

DRUGS (2)
  1. SYNAGIS [Suspect]
     Active Substance: PALIVIZUMAB
     Indication: Premature baby
     Dosage: 50MG SDV/INJ PF 0.5ML 1^S AND 100MG SDV/INJ PF 1ML1^S
     Route: 030
     Dates: start: 20230127
  2. IRON\VITAMINS [Concomitant]
     Active Substance: IRON\VITAMINS
     Indication: Product used for unknown indication

REACTIONS (2)
  - Ear infection [Unknown]
  - Product dose omission issue [Unknown]
